FAERS Safety Report 9391533 (Version 2)
Quarter: 2013Q4

REPORT INFORMATION
  Report Type: Spontaneous
  Country: CA (occurrence: CA)
  Receive Date: 20130709
  Receipt Date: 20131015
  Transmission Date: 20140711
  Serious: Yes (Hospitalization, Other)
  Sender: FDA-Public Use
  Company Number: CA-BAYER-2013-081015

PATIENT
  Age: 80 Year
  Sex: Female
  Weight: 78.01 kg

DRUGS (11)
  1. ASPIRIN CHILDREN?S SIZE [Suspect]
     Indication: PROPHYLAXIS
     Dosage: 80 MG, QD
     Route: 048
     Dates: start: 20090625
  2. PRADAXA [Suspect]
     Indication: ATRIAL FIBRILLATION
     Dosage: 110 MG, BID (2 IN 1 DAY)
     Route: 048
     Dates: start: 20121220, end: 20130107
  3. ATENOLOL BP [Concomitant]
  4. CALCIUM [Concomitant]
  5. DILAUDID [Concomitant]
  6. FERROUS SULPHATE [Concomitant]
  7. NITROGLYCERIN [Concomitant]
  8. PANTOPRAZOLE [Concomitant]
  9. PRAVASTATIN SODIUM [Concomitant]
  10. TYLENOL [PARACETAMOL] [Concomitant]
  11. GUAIFENESIN W/PHENYLEPHRINE [Concomitant]

REACTIONS (8)
  - Creatinine renal clearance decreased [Unknown]
  - Impaired healing [Unknown]
  - Wound complication [Unknown]
  - Wound haematoma [Unknown]
  - Wound infection [Unknown]
  - Wound secretion [Unknown]
  - Anaemia [Unknown]
  - Labelled drug-drug interaction medication error [None]
